FAERS Safety Report 24232552 (Version 2)
Quarter: 2025Q3

REPORT INFORMATION
  Report Type: Spontaneous
  Country: KR (occurrence: KR)
  Receive Date: 20240821
  Receipt Date: 20250912
  Transmission Date: 20251020
  Serious: Yes (Hospitalization)
  Sender: MYLAN
  Company Number: KR-MYLANLABS-2024M1074928

PATIENT
  Sex: Male
  Weight: 83.4 kg

DRUGS (5)
  1. LIPITOR [Suspect]
     Active Substance: ATORVASTATIN CALCIUM
     Indication: End stage renal disease
     Dosage: 1 DOSAGE FORM, QD
     Dates: start: 20170403, end: 20230316
  2. FUROSEMIDE [Concomitant]
     Active Substance: FUROSEMIDE
     Indication: End stage renal disease
     Dosage: 1 DOSAGE FORM, QD
     Dates: start: 20170403, end: 20230316
  3. LINAGLIPTIN [Concomitant]
     Active Substance: LINAGLIPTIN
     Indication: End stage renal disease
     Dosage: 1 DOSAGE FORM, QD
     Dates: start: 20170403, end: 20230316
  4. LYRICA [Concomitant]
     Active Substance: PREGABALIN
     Indication: End stage renal disease
     Dosage: 1 DOSAGE FORM, QD
     Dates: start: 20170403, end: 20230316
  5. AMLODIPINE\VALSARTAN [Concomitant]
     Active Substance: AMLODIPINE\VALSARTAN
     Indication: End stage renal disease
     Dosage: 1 DOSAGE FORM, QD
     Dates: start: 20170403, end: 20230316

REACTIONS (3)
  - Blood creatine phosphokinase increased [Recovering/Resolving]
  - Pain in extremity [Recovering/Resolving]
  - Off label use [Unknown]

NARRATIVE: CASE EVENT DATE: 20170403
